FAERS Safety Report 9852208 (Version 1)
Quarter: 2014Q1

REPORT INFORMATION
  Report Type: Spontaneous
  Country: FR (occurrence: FR)
  Receive Date: 20140129
  Receipt Date: 20140129
  Transmission Date: 20141002
  Serious: Yes (Hospitalization)
  Sender: FDA-Public Use
  Company Number: FR-BAYER-2014-014221

PATIENT
  Age: 66 Year
  Sex: Male

DRUGS (2)
  1. CIFLOX [Suspect]
     Dosage: 800 MG, UNK
     Route: 042
     Dates: start: 20131217, end: 20131218
  2. TIENAM [Suspect]
     Dosage: UNK
     Route: 042
     Dates: start: 20131217, end: 20131220

REACTIONS (1)
  - Neutropenia [Unknown]
